FAERS Safety Report 24227134 (Version 1)
Quarter: 2024Q3

REPORT INFORMATION
  Report Type: Spontaneous
  Country: ES (occurrence: ES)
  Receive Date: 20240820
  Receipt Date: 20240820
  Transmission Date: 20241016
  Serious: Yes (Other)
  Sender: NOVARTIS
  Company Number: None

PATIENT
  Age: 21 Year
  Sex: Female
  Weight: 59 kg

DRUGS (3)
  1. TEGRETOL [Suspect]
     Active Substance: CARBAMAZEPINE
     Indication: Epilepsy
     Dosage: 400 MG, Q12H
     Route: 048
     Dates: start: 201806
  2. VIMPAT [Suspect]
     Active Substance: LACOSAMIDE
     Indication: Epilepsy
     Dosage: UNK (100-0-200 MG)
     Route: 048
     Dates: start: 202009
  3. BRIVIACT [Suspect]
     Active Substance: BRIVARACETAM
     Indication: Epilepsy
     Dosage: 50 MG, Q12H
     Route: 048
     Dates: start: 202108

REACTIONS (1)
  - Disturbance in social behaviour [Unknown]

NARRATIVE: CASE EVENT DATE: 20211101
